FAERS Safety Report 12425762 (Version 1)
Quarter: 2016Q2

REPORT INFORMATION
  Report Type: Spontaneous
  Country: US (occurrence: US)
  Receive Date: 20160601
  Receipt Date: 20160601
  Transmission Date: 20160815
  Serious: No
  Sender: FDA-Public Use
  Company Number: US-PURDUE-USA-2016-0129947

PATIENT
  Sex: Female
  Weight: 90.7 kg

DRUGS (1)
  1. OXYCODONE/ ACETAMINOPHEN TABLETS [Suspect]
     Active Substance: ACETAMINOPHEN\OXYCODONE HYDROCHLORIDE
     Indication: PAIN
     Dosage: UNK, Q6H
     Route: 048
     Dates: end: 20150304

REACTIONS (3)
  - Drug ineffective [Unknown]
  - Insomnia [Unknown]
  - Pain [Unknown]
